FAERS Safety Report 8453577-3 (Version None)
Quarter: 2012Q2

REPORT INFORMATION
  Report Type: 
  Country: None (occurrence: None)
  Receive Date: 20120620
  Receipt Date: 20120613
  Transmission Date: 20120825
  Serious: Yes (Death)
  Sender: FDA-Public Use
  Company Number: US-CELGENEUS-163-21880-12051801

PATIENT
  Sex: Male

DRUGS (2)
  1. REVLIMID [Suspect]
  2. REVLIMID [Suspect]
     Dosage: 10 MILLIGRAM
     Route: 048
     Dates: start: 20111201, end: 20120101

REACTIONS (2)
  - MYELODYSPLASTIC SYNDROME [None]
  - CHRONIC MYELOMONOCYTIC LEUKAEMIA [None]
